FAERS Safety Report 15084980 (Version 3)
Quarter: 2018Q3

REPORT INFORMATION
  Report Type: Spontaneous
  Country: US (occurrence: US)
  Receive Date: 20180628
  Receipt Date: 20180925
  Transmission Date: 20181010
  Serious: Yes (Other)
  Sender: FDA-Public Use
  Company Number: US-OTSUKA-2018_013207

PATIENT
  Age: 50 Year
  Sex: Male
  Weight: 84.81 kg

DRUGS (13)
  1. ABILIFY [Suspect]
     Active Substance: ARIPIPRAZOLE
     Indication: BIPOLAR DISORDER
     Dosage: 15 MG, QD (EVERY MORNING)
     Route: 048
     Dates: start: 200211
  2. CYCLOBENZAPRINE HCL [Concomitant]
     Active Substance: CYCLOBENZAPRINE HYDROCHLORIDE
     Indication: MUSCLE SPASMS
     Dosage: 1 DF, BID
     Route: 048
     Dates: start: 20040212
  3. ABILIFY [Suspect]
     Active Substance: ARIPIPRAZOLE
     Indication: AFFECTIVE DISORDER
     Dosage: 15 MG, BID
     Route: 048
     Dates: start: 20051221
  4. KETOROLAC TROMETHAMINE. [Concomitant]
     Active Substance: KETOROLAC TROMETHAMINE
     Indication: PRODUCT USED FOR UNKNOWN INDICATION
     Dosage: 60 MG/2 ML, UNK
     Route: 030
     Dates: start: 20001026, end: 20100112
  5. ABILIFY [Suspect]
     Active Substance: ARIPIPRAZOLE
     Dosage: UNK, BID (HALF TABLET OF 30MG TWICE A DAY)
     Route: 048
     Dates: end: 201402
  6. TRAMADOL HCL [Concomitant]
     Active Substance: TRAMADOL HYDROCHLORIDE
     Indication: PRODUCT USED FOR UNKNOWN INDICATION
     Dosage: 2 DF, THREE TIMES OR FOUR TIMES A DAY (AS NEEDED)
     Route: 048
     Dates: start: 20001026, end: 20100818
  7. CYCLOBENZAPRINE HCL [Concomitant]
     Active Substance: CYCLOBENZAPRINE HYDROCHLORIDE
     Indication: MUSCLE RELAXANT THERAPY
     Dosage: 1 DF, TID  (AS NEEDED)
     Route: 048
     Dates: start: 19980427
  8. CYCLOBENZAPRINE HCL [Concomitant]
     Active Substance: CYCLOBENZAPRINE HYDROCHLORIDE
     Indication: PAIN
     Dosage: 1 DF, QD (AS NEEDED, BEDTIME)
     Route: 048
     Dates: start: 20070427
  9. CYCLOBENZAPRINE HCL [Concomitant]
     Active Substance: CYCLOBENZAPRINE HYDROCHLORIDE
     Dosage: 1 DF, TID  (AS NEEDED)
     Route: 048
     Dates: start: 20090629, end: 20100630
  10. IBUPROFEN. [Concomitant]
     Active Substance: IBUPROFEN
     Indication: BACK PAIN
  11. DEPAKOTE [Suspect]
     Active Substance: DIVALPROEX SODIUM
     Indication: BIPOLAR DISORDER
     Dosage: 2 DF, QD (BEDTIME)
     Route: 048
  12. IBUPROFEN. [Concomitant]
     Active Substance: IBUPROFEN
     Indication: PAIN
     Dosage: 1 DF, TID (AS NEEDED) (800 OR 600 OR 400 MG)
     Route: 048
     Dates: start: 19980225
  13. IBUPROFEN. [Concomitant]
     Active Substance: IBUPROFEN
     Indication: INFLAMMATION

REACTIONS (38)
  - Anhedonia [Unknown]
  - Irritability [Recovering/Resolving]
  - Blood creatinine decreased [Unknown]
  - Rhinitis [Unknown]
  - Bronchitis [Unknown]
  - Monocyte count increased [Unknown]
  - Hypotension [Unknown]
  - Anxiety [Unknown]
  - Product use in unapproved indication [Unknown]
  - Spinal osteoarthritis [Unknown]
  - Pneumonia [Unknown]
  - Amnesia [Unknown]
  - Peripheral swelling [Unknown]
  - Arthritis [Unknown]
  - Emotional distress [Recovering/Resolving]
  - Back pain [Not Recovered/Not Resolved]
  - Gambling disorder [Recovered/Resolved]
  - Sedation [Unknown]
  - Condition aggravated [Unknown]
  - Sexual dysfunction [Recovered/Resolved]
  - Low density lipoprotein increased [Unknown]
  - Lymphocyte count decreased [Unknown]
  - Blood cholesterol increased [Unknown]
  - Compulsive shopping [Recovered/Resolved]
  - Divorced [Unknown]
  - Inappropriate schedule of drug administration [Unknown]
  - Neutrophil count increased [Unknown]
  - Chest pain [Recovered/Resolved]
  - Weight increased [Unknown]
  - Wrong technique in product usage process [Unknown]
  - Disability [Unknown]
  - Injury [Unknown]
  - Cholelithiasis [Unknown]
  - Myalgia [Unknown]
  - Economic problem [Unknown]
  - Emotional distress [Unknown]
  - Paraesthesia [Unknown]
  - Pain in extremity [Unknown]

NARRATIVE: CASE EVENT DATE: 200211
